FAERS Safety Report 5977896-5 (Version None)
Quarter: 2008Q4

REPORT INFORMATION
  Report Type: 
  Country: None (occurrence: None)
  Receive Date: 20081203
  Receipt Date: 20081122
  Transmission Date: 20090506
  Serious: Yes (Other)
  Sender: FDA-Public Use
  Company Number: JP-BAXTER-2008BH012952

PATIENT
  Age: 7 Year
  Sex: Female

DRUGS (4)
  1. ENDOXAN BAXTER [Suspect]
     Indication: NEUROBLASTOMA
     Route: 065
  2. DACARBAZINE [Suspect]
     Indication: NEUROBLASTOMA
     Route: 065
  3. THERARUBICIN [Suspect]
     Indication: NEUROBLASTOMA
     Route: 065
  4. CARBOPLATIN [Suspect]
     Indication: NEUROBLASTOMA
     Route: 041

REACTIONS (1)
  - BONE SARCOMA [None]
